FAERS Safety Report 10192459 (Version 1)
Quarter: 2014Q2

REPORT INFORMATION
  Report Type: Spontaneous
  Country: JP (occurrence: JP)
  Receive Date: 20140523
  Receipt Date: 20140523
  Transmission Date: 20141212
  Serious: Yes (Hospitalization, Other)
  Sender: FDA-Public Use
  Company Number: JP-ACTAVIS-2014-10985

PATIENT
  Age: 82 Year
  Sex: Female

DRUGS (3)
  1. BUPRENORPHINE [Suspect]
     Indication: BACK PAIN
     Dosage: 10 MG, UNKNOWN
     Route: 061
  2. TRAMADOL (UNKNOWN) [Suspect]
     Indication: BACK PAIN
     Dosage: 37.5 MG, UNKNOWN
     Route: 065
  3. ACETAMINOPHEN [Concomitant]
     Indication: BACK PAIN
     Dosage: 325 MG, UNKNOWN
     Route: 065

REACTIONS (4)
  - Delirium [Recovering/Resolving]
  - Lethargy [Unknown]
  - Nausea [Unknown]
  - Application site dermatitis [Unknown]
